FAERS Safety Report 25853029 (Version 1)
Quarter: 2025Q3

REPORT INFORMATION
  Report Type: Spontaneous
  Country: US (occurrence: None)
  Receive Date: 20250926
  Receipt Date: 20250926
  Transmission Date: 20251020
  Serious: Yes (Death)
  Sender: FDA-CTU
  Company Number: None

PATIENT
  Sex: Male

DRUGS (5)
  1. CAPECITABINE [Suspect]
     Active Substance: CAPECITABINE
     Indication: Rectal cancer
     Route: 048
     Dates: start: 20250216
  2. CAPECITABINE [Concomitant]
     Active Substance: CAPECITABINE
  3. FERROUS SULF TAB 325MG [Concomitant]
  4. KP VITAMIN D [Concomitant]
  5. VITAMIN B-12TAB 500MCG [Concomitant]

REACTIONS (1)
  - Death [None]
